FAERS Safety Report 13902314 (Version 1)
Quarter: 2017Q3

REPORT INFORMATION
  Report Type: Spontaneous
  Country: US (occurrence: US)
  Receive Date: 20170824
  Receipt Date: 20170824
  Transmission Date: 20171127
  Serious: No
  Sender: FDA-Public Use
  Company Number: US-ROCHE-759200

PATIENT
  Sex: Female

DRUGS (1)
  1. HERCEPTIN [Suspect]
     Active Substance: TRASTUZUMAB
     Indication: METASTASIS
     Dosage: MAINTENENCE DOSE?FREQUENCY : EVERY 2-3 WEEKS
     Route: 065

REACTIONS (2)
  - Rib fracture [Unknown]
  - Cough [Unknown]
